FAERS Safety Report 5050430-2 (Version None)
Quarter: 2006Q3

REPORT INFORMATION
  Report Type: 
  Country: None (occurrence: None)
  Receive Date: 20060707
  Receipt Date: 20060630
  Transmission Date: 20061208
  Serious: Yes (Life-Threatening, Hospitalization)
  Sender: FDA-Public Use
  Company Number: DEU-2006-0002312

PATIENT
  Age: 54 Year
  Sex: Male

DRUGS (1)
  1. PALLADONE-SR 8 MG(HYDROMORPHONE HYDROCHLORIDE) PROLONGED-RELEASE CAPSU [Suspect]
     Indication: PAIN
     Dosage: 8 MG, TWICE, ORAL
     Route: 048
     Dates: start: 20060623, end: 20060624

REACTIONS (4)
  - CONDITION AGGRAVATED [None]
  - DEHYDRATION [None]
  - HEPATIC FAILURE [None]
  - RENAL FAILURE [None]
